FAERS Safety Report 20394142 (Version 1)
Quarter: 2022Q1

REPORT INFORMATION
  Report Type: Spontaneous
  Country: US (occurrence: US)
  Receive Date: 20220129
  Receipt Date: 20220129
  Transmission Date: 20220424
  Serious: Yes (Death, Hospitalization, Other)
  Sender: FDA-Public Use
  Company Number: US-UNITED THERAPEUTICS-UNT-2022-001901

PATIENT
  Age: 64 Year
  Sex: Female
  Weight: 77.098 kg

DRUGS (2)
  1. TYVASO [Suspect]
     Active Substance: TREPROSTINIL
     Indication: Pulmonary arterial hypertension
     Dosage: UNK
     Dates: start: 20211228
  2. TYVASO [Suspect]
     Active Substance: TREPROSTINIL
     Dosage: 12-72 ?G, QID

REACTIONS (2)
  - Death [Fatal]
  - Pain [Unknown]

NARRATIVE: CASE EVENT DATE: 20220101
